FAERS Safety Report 22868394 (Version 2)
Quarter: 2023Q4

REPORT INFORMATION
  Report Type: Report from Study
  Country: KR (occurrence: KR)
  Receive Date: 20230825
  Receipt Date: 20231128
  Transmission Date: 20240110
  Serious: Yes (Other)
  Sender: FDA-Public Use
  Company Number: KR-JNJFOC-20230838806

PATIENT
  Age: 65 Year
  Sex: Female

DRUGS (10)
  1. AMIVANTAMAB [Suspect]
     Active Substance: AMIVANTAMAB
     Indication: Non-small cell lung cancer metastatic
     Dosage: MOST RECENT DOSE ON 09-AUG-2023
     Route: 042
     Dates: start: 20210823
  2. PEMETREXED [Suspect]
     Active Substance: PEMETREXED
     Indication: Non-small cell lung cancer metastatic
     Dosage: MOST RECENT DOSE 09-AUG-2023
     Route: 042
     Dates: start: 20210823
  3. CARBOPLATIN [Concomitant]
     Active Substance: CARBOPLATIN
     Indication: Non-small cell lung cancer metastatic
     Route: 042
     Dates: start: 20210823, end: 20211025
  4. EASYEF [Concomitant]
     Indication: Rash
     Route: 061
     Dates: start: 20230503
  5. SOMERON [Concomitant]
     Indication: Rash
     Route: 048
     Dates: start: 20230722, end: 20230808
  6. POLYDEOXYRIBONUCLEOTIDE SODIUM [Concomitant]
     Indication: Rash
     Route: 026
     Dates: start: 20230809, end: 20230809
  7. TRIAMCINOLONE [Concomitant]
     Active Substance: TRIAMCINOLONE
     Indication: Rash
     Route: 026
     Dates: start: 20230809, end: 20230809
  8. MINOCYCLINE HYDROCHLORIDE [Concomitant]
     Active Substance: MINOCYCLINE HYDROCHLORIDE
     Indication: Rash
     Route: 048
     Dates: start: 20220117, end: 20230809
  9. BEAROBAN [Concomitant]
     Indication: Rash
     Route: 061
     Dates: start: 20230424
  10. ESPERSON [Concomitant]
     Indication: Rash
     Route: 061
     Dates: start: 20230424

REACTIONS (1)
  - Retinal detachment [Recovered/Resolved]

NARRATIVE: CASE EVENT DATE: 20230816
